FAERS Safety Report 20945627 (Version 4)
Quarter: 2022Q3

REPORT INFORMATION
  Report Type: Spontaneous
  Country: US (occurrence: US)
  Receive Date: 20220610
  Receipt Date: 20220721
  Transmission Date: 20221027
  Serious: No
  Sender: FDA-Public Use
  Company Number: US-PFIZER INC-202200808059

PATIENT
  Age: 67 Year
  Sex: Female
  Weight: 50.8 kg

DRUGS (1)
  1. EUCRISA [Suspect]
     Active Substance: CRISABOROLE
     Indication: Eczema
     Dosage: APPLY TWICE TO RASH ON EYELIDS
     Route: 061
     Dates: start: 20220603

REACTIONS (7)
  - Application site swelling [Recovering/Resolving]
  - Swelling of eyelid [Recovering/Resolving]
  - Application site erythema [Recovering/Resolving]
  - Drug hypersensitivity [Unknown]
  - Periorbital swelling [Unknown]
  - Periorbital irritation [Unknown]
  - Erythema [Unknown]

NARRATIVE: CASE EVENT DATE: 20220604
